FAERS Safety Report 5709707-7 (Version None)
Quarter: 2008Q2

REPORT INFORMATION
  Report Type: 
  Country: None (occurrence: None)
  Receive Date: 20080418
  Receipt Date: 20080409
  Transmission Date: 20081010
  Serious: Yes (Other)
  Sender: FDA-Public Use
  Company Number: PHHY2008BR05333

PATIENT
  Age: 71 Year
  Sex: Female
  Weight: 64 kg

DRUGS (3)
  1. HYDERGINE [Suspect]
     Dosage: 4.5 MG, 1 TABLET/DAY
     Route: 048
     Dates: start: 19840101
  2. NIFEDIPINE [Concomitant]
     Indication: BLOOD PRESSURE
     Dosage: 2 TABLETS/DAY
     Route: 048
     Dates: start: 19840101
  3. LEXOTAN [Concomitant]
     Dosage: 1 TABLET/DAY
     Route: 048
     Dates: start: 19840101

REACTIONS (6)
  - ARTHRALGIA [None]
  - BLOOD PRESSURE INCREASED [None]
  - MONOPLEGIA [None]
  - OSTEOARTHRITIS [None]
  - PAIN IN EXTREMITY [None]
  - SPINAL DISORDER [None]
